FAERS Safety Report 8975968 (Version 3)
Quarter: 2013Q1

REPORT INFORMATION
  Report Type: Spontaneous
  Country: FR (occurrence: FR)
  Receive Date: 20121219
  Receipt Date: 20130114
  Transmission Date: 20140127
  Serious: Yes (Death, Other)
  Sender: FDA-Public Use
  Company Number: FR-ROCHE-1170205

PATIENT
  Age: 65 Year
  Sex: Male

DRUGS (1)
  1. ACTILYSE [Suspect]
     Indication: ISCHAEMIC STROKE
     Route: 042

REACTIONS (3)
  - Cardiac tamponade [Fatal]
  - Aortic dissection [Unknown]
  - Blood pressure decreased [Unknown]
